FAERS Safety Report 7736774-1 (Version None)
Quarter: 2011Q3

REPORT INFORMATION
  Report Type: 
  Country: None (occurrence: None)
  Receive Date: 20110908
  Receipt Date: 20110903
  Transmission Date: 20111222
  Serious: Yes (Death, Hospitalization, Other)
  Sender: FDA-Public Use
  Company Number: PHHY2011GB78736

PATIENT
  Age: 22 Year
  Sex: Male

DRUGS (9)
  1. AZATHIOPRINE [Concomitant]
     Dosage: 75 MG, UNK
  2. URSODIOL [Concomitant]
     Dosage: 500 MG, BID
  3. URSODIOL [Concomitant]
     Dosage: 250 MG, BID
  4. CYCLOSPORINE [Suspect]
     Indication: LIVER TRANSPLANT
     Dosage: 150 MG, BID
  5. GEMCITABINE [Concomitant]
  6. RAPAMUNE [Concomitant]
     Dosage: 3 MG, OD
  7. PREDNISOLONE [Concomitant]
     Dosage: 15 MG, DAILY
  8. FLUOROURACIL [Concomitant]
  9. CISPLATIN [Concomitant]

REACTIONS (21)
  - CHOLANGITIS SCLEROSING [None]
  - HEPATIC MASS [None]
  - METASTASES TO LUNG [None]
  - BLOOD ALKALINE PHOSPHATASE INCREASED [None]
  - FATIGUE [None]
  - SEPTIC SHOCK [None]
  - CHEST PAIN [None]
  - CHOLESTASIS [None]
  - HEPATIC FIBROSIS [None]
  - BILE DUCT CANCER [None]
  - TRANSPLANT ABSCESS [None]
  - PORTAL HYPERTENSION [None]
  - DILATATION INTRAHEPATIC DUCT ACQUIRED [None]
  - HEPATIC NEOPLASM [None]
  - ASPARTATE AMINOTRANSFERASE INCREASED [None]
  - METASTASES TO BONE [None]
  - BLOOD BILIRUBIN INCREASED [None]
  - GAMMA-GLUTAMYLTRANSFERASE INCREASED [None]
  - CHOLANGITIS [None]
  - ALPHA HAEMOLYTIC STREPTOCOCCAL INFECTION [None]
  - DYSPNOEA [None]
